FAERS Safety Report 15798525 (Version 1)
Quarter: 2019Q1

REPORT INFORMATION
  Report Type: Spontaneous
  Country: US (occurrence: US)
  Receive Date: 20190108
  Receipt Date: 20190108
  Transmission Date: 20190417
  Serious: Yes (Other)
  Sender: FDA-Public Use
  Company Number: None

PATIENT
  Age: 60 Year
  Sex: Female
  Weight: 65.25 kg

DRUGS (2)
  1. IBPROPHEN 500MG [Suspect]
     Active Substance: IBUPROFEN
     Indication: PAIN
     Dosage: ?          QUANTITY:500 CAPSULE(S);OTHER FREQUENCY:7 PILLS 5^6 TIMES;?
     Route: 048
     Dates: start: 20170920, end: 20190106
  2. FIORCET [Concomitant]

REACTIONS (11)
  - Gait disturbance [None]
  - Cardiac disorder [None]
  - Hepatic pain [None]
  - Bedridden [None]
  - Pain [None]
  - Cortisol increased [None]
  - Hypoaesthesia [None]
  - Withdrawal syndrome [None]
  - Hepatic failure [None]
  - Tachycardia [None]
  - Gait inability [None]

NARRATIVE: CASE EVENT DATE: 20170920
